FAERS Safety Report 16935404 (Version 17)
Quarter: 2020Q4

REPORT INFORMATION
  Report Type: Report from Study
  Country: KR (occurrence: KR)
  Receive Date: 20191018
  Receipt Date: 20201231
  Transmission Date: 20210113
  Serious: Yes (Death, Hospitalization)
  Sender: FDA-Public Use
  Company Number: KR-ROCHE-2235730

PATIENT
  Age: 77 Year
  Sex: Male
  Weight: 51 kg

DRUGS (75)
  1. PLACEBO [Suspect]
     Active Substance: UNSPECIFIED INGREDIENT
     Indication: NON-SMALL CELL LUNG CANCER
     Dosage: DATE OF MOST RECENT DOSE PRIOR TO SAE ON 13/OCT/2018 AT 13:25
     Route: 042
     Dates: start: 20181008
  2. EBASTEL [Concomitant]
     Active Substance: EBASTINE
     Indication: RHINORRHOEA
     Route: 048
     Dates: start: 20190801, end: 20191005
  3. MOKTIN [Concomitant]
     Dosage: 600 OTHER
     Route: 048
     Dates: start: 20190506, end: 20190507
  4. MICARDIS [Concomitant]
     Active Substance: TELMISARTAN
     Route: 048
     Dates: start: 20201006, end: 20201007
  5. PARIET [Concomitant]
     Active Substance: RABEPRAZOLE SODIUM
     Route: 048
     Dates: start: 20191011
  6. LOPERAMIDE [Concomitant]
     Active Substance: LOPERAMIDE
     Indication: DIARRHOEA
     Route: 048
     Dates: start: 20191114, end: 20191118
  7. TRIDOL [Concomitant]
     Active Substance: TRAMADOL HYDROCHLORIDE
     Indication: PAIN
     Route: 042
     Dates: start: 20201006, end: 20201006
  8. SEPTRIN [Concomitant]
     Active Substance: SULFAMETHOXAZOLE\TRIMETHOPRIM
     Route: 048
     Dates: start: 20191011, end: 20191024
  9. HISTAL (SOUTH KOREA) [Concomitant]
     Indication: DYSPEPSIA
     Dosage: 2 TABLETS
     Route: 048
     Dates: start: 20201120, end: 20201120
  10. TRESTAN [Concomitant]
     Dosage: 1 CAPSULE
     Route: 048
     Dates: start: 20200305
  11. SOLONDO [Concomitant]
     Active Substance: PREDNISOLONE
     Route: 048
     Dates: start: 20191206, end: 20200205
  12. WINUF PERI [Concomitant]
     Active Substance: AMINO ACIDS\DEXTROSE\ELECTROLYTES NOS\SOYBEAN OIL\VITAMINS
     Route: 042
     Dates: start: 20190807, end: 20190814
  13. CHLORPHENIRAMINE MALEATE. [Concomitant]
     Active Substance: CHLORPHENIRAMINE MALEATE
     Route: 042
     Dates: start: 20191009, end: 20191009
  14. GLYCERIN. [Concomitant]
     Active Substance: GLYCERIN
     Indication: CONSTIPATION
     Route: 054
     Dates: start: 20191015, end: 20191015
  15. ATEZOLIZUMAB. [Suspect]
     Active Substance: ATEZOLIZUMAB
     Indication: NON-SMALL CELL LUNG CANCER
     Dosage: DATE OF MOST RECENT DOSE PRIOR TO SAE ON 13/OCT/2018 AT 12:25.?ON 30/SEP/2019 AT 13:20 AND 13:50, HE
     Route: 041
     Dates: start: 20181008
  16. DENOGAN [Concomitant]
     Active Substance: PROPACETAMOL HYDROCHLORIDE
     Route: 065
     Dates: start: 20190807, end: 20190814
  17. DIHYDROCODEINE BITARTRATE [Concomitant]
     Active Substance: DIHYDROCODEINE BITARTRATE
     Indication: COUGH
     Route: 048
     Dates: start: 20181222, end: 20190103
  18. DIHYDROCODEINE BITARTRATE [Concomitant]
     Active Substance: DIHYDROCODEINE BITARTRATE
     Dates: start: 20190810, end: 20190811
  19. IBUPROFEN. [Concomitant]
     Active Substance: IBUPROFEN
     Indication: PAIN IN EXTREMITY
     Route: 048
     Dates: start: 20190103, end: 20190207
  20. TWYNFORGE [Concomitant]
     Indication: HYPERTENSION
     Dosage: 1 TABLET
     Route: 048
     Dates: end: 20191006
  21. CHLORPHENIRAMINE MALEATE. [Concomitant]
     Active Substance: CHLORPHENIRAMINE MALEATE
     Route: 042
     Dates: start: 20190507, end: 20190507
  22. CHLORPHENAMINE MALEATE;GUAIFENESIN;METHYLEPHEDRINE HYDROCHLORIDE-DL [Concomitant]
     Dosage: 2  TABLET
     Route: 048
     Dates: start: 20190810, end: 20190811
  23. L-TIRIZINE [Concomitant]
     Indication: RHINORRHOEA
     Route: 048
     Dates: start: 20200305
  24. GASTER [Concomitant]
     Active Substance: FAMOTIDINE
     Indication: DYSPEPSIA
     Route: 048
     Dates: start: 20200305
  25. TRIDOL [Concomitant]
     Active Substance: TRAMADOL HYDROCHLORIDE
     Indication: HEADACHE
     Route: 042
     Dates: start: 20200127, end: 20200127
  26. PACETA [Concomitant]
     Indication: PAIN
     Route: 042
     Dates: start: 20201119, end: 20201119
  27. MEGACE [Concomitant]
     Active Substance: MEGESTROL ACETATE
     Indication: DECREASED APPETITE
     Route: 048
     Dates: start: 20180921
  28. TRESTAN [Concomitant]
     Route: 048
     Dates: start: 20191006
  29. CHLORPHENIRAMINE. [Concomitant]
     Active Substance: CHLORPHENIRAMINE
     Route: 042
     Dates: start: 20191010, end: 20191017
  30. GUAIFENESIN. [Concomitant]
     Active Substance: GUAIFENESIN
     Indication: COUGH
     Route: 048
     Dates: start: 20181222, end: 20190103
  31. TWYNFORGE [Concomitant]
     Indication: HYPERTENSION
     Dosage: 40/5 MG
     Route: 048
     Dates: start: 2019
  32. ASPIRIN. [Concomitant]
     Active Substance: ASPIRIN
     Route: 048
     Dates: start: 20191007, end: 20191016
  33. CURAN [Concomitant]
     Active Substance: RANITIDINE HYDROCHLORIDE
     Indication: DYSPEPSIA
     Route: 048
     Dates: start: 20190415, end: 20190906
  34. LYRICA [Concomitant]
     Active Substance: PREGABALIN
     Route: 048
     Dates: start: 20200305
  35. MORPHINE SULFATE. [Concomitant]
     Active Substance: MORPHINE SULFATE
     Indication: ABDOMINAL PAIN
     Route: 048
     Dates: start: 20190814, end: 20190814
  36. NORVASC [Concomitant]
     Active Substance: AMLODIPINE BESYLATE
     Route: 048
     Dates: start: 20201006, end: 20201007
  37. DUPHALAC EASY [Concomitant]
     Active Substance: LACTULOSE
     Indication: CONSTIPATION
     Route: 048
     Dates: start: 20191015, end: 20191024
  38. VENTOLIN [Concomitant]
     Active Substance: ALBUTEROL SULFATE
     Indication: DYSPNOEA
     Route: 055
     Dates: start: 20201003
  39. LASIX [Concomitant]
     Active Substance: FUROSEMIDE
     Indication: DYSPNOEA
     Route: 050
     Dates: start: 20201120, end: 20201120
  40. NUCYNTA ER [Concomitant]
     Active Substance: TAPENTADOL HYDROCHLORIDE
     Indication: PAIN
     Route: 048
     Dates: start: 20201118, end: 20201204
  41. GUAIFENESIN. [Concomitant]
     Active Substance: GUAIFENESIN
     Dates: start: 20190810, end: 20190811
  42. CHLORPHENIRAMINE MALEATE. [Concomitant]
     Active Substance: CHLORPHENIRAMINE MALEATE
     Indication: COUGH
     Route: 048
     Dates: start: 20181222, end: 20190103
  43. ASPIRIN. [Concomitant]
     Active Substance: ASPIRIN
     Indication: HYPERTENSION
     Route: 048
     Dates: end: 20191006
  44. LYRICA [Concomitant]
     Active Substance: PREGABALIN
     Indication: PAIN IN EXTREMITY
     Dosage: 1 CAPSULE
     Route: 048
     Dates: start: 20190415, end: 20200226
  45. SOLONDO [Concomitant]
     Active Substance: PREDNISOLONE
     Route: 048
     Dates: start: 20200313
  46. SOLONDO [Concomitant]
     Active Substance: PREDNISOLONE
     Route: 048
     Dates: start: 20200723, end: 20201111
  47. SEROQUEL [Concomitant]
     Active Substance: QUETIAPINE FUMARATE
     Route: 048
     Dates: start: 20191007, end: 20191016
  48. NORVASC [Concomitant]
     Active Substance: AMLODIPINE BESYLATE
     Indication: HYPERTENSION
     Route: 048
     Dates: start: 20191007, end: 20191016
  49. MAGMIL S [Concomitant]
     Route: 048
     Dates: start: 20191014, end: 20191031
  50. L-TIRIZINE [Concomitant]
     Route: 048
     Dates: start: 20200206, end: 20200226
  51. LACTICARE ZEMAGIS [Concomitant]
     Indication: PRURITUS
     Route: 061
     Dates: start: 20200702
  52. LIDOCAINE. [Concomitant]
     Active Substance: LIDOCAINE
     Route: 042
     Dates: start: 20201118, end: 20201118
  53. IBUPROFEN. [Concomitant]
     Active Substance: IBUPROFEN
     Route: 048
     Dates: start: 20190326, end: 20191006
  54. SOLONDO [Concomitant]
     Active Substance: PREDNISOLONE
     Route: 048
     Dates: start: 20200521, end: 20200610
  55. MICARDIS [Concomitant]
     Active Substance: TELMISARTAN
     Indication: HYPERTENSION
     Route: 048
     Dates: start: 20191007, end: 20191016
  56. MAGMIL S [Concomitant]
     Indication: CONSTIPATION
     Route: 048
     Dates: start: 20191014, end: 20191031
  57. CHLORPHENIRAMINE. [Concomitant]
     Active Substance: CHLORPHENIRAMINE
     Route: 042
     Dates: start: 20181221, end: 20181221
  58. SOLONDO [Concomitant]
     Active Substance: PREDNISOLONE
     Indication: PRURITUS
     Route: 048
     Dates: start: 20190708, end: 20190714
  59. SOLONDO [Concomitant]
     Active Substance: PREDNISOLONE
     Route: 048
     Dates: start: 20190801, end: 20190819
  60. EBASTEL [Concomitant]
     Active Substance: EBASTINE
     Route: 048
     Dates: start: 20200305
  61. TRIDOL [Concomitant]
     Active Substance: TRAMADOL HYDROCHLORIDE
     Indication: ABDOMINAL PAIN UPPER
     Route: 042
     Dates: start: 20200814, end: 20200814
  62. MACPERAN [Concomitant]
     Active Substance: METOCLOPRAMIDE HYDROCHLORIDE
     Indication: VOMITING
     Route: 042
     Dates: start: 20200127, end: 20200127
  63. LASIX [Concomitant]
     Active Substance: FUROSEMIDE
     Indication: PERICARDIAL EFFUSION
     Route: 042
     Dates: start: 20201006, end: 20201006
  64. LIDOCAINE. [Concomitant]
     Active Substance: LIDOCAINE
     Indication: PERICARDIAL DRAINAGE
     Route: 058
     Dates: start: 20201006, end: 20201006
  65. TRESTAN [Concomitant]
     Indication: DECREASED APPETITE
     Route: 048
     Dates: start: 20181213, end: 20191005
  66. DENOGAN [Concomitant]
     Active Substance: PROPACETAMOL HYDROCHLORIDE
     Indication: PYREXIA
     Route: 042
     Dates: start: 20181221, end: 20181221
  67. DL-METHYLEPHEDRINE HYDROCHLORIDE [Concomitant]
     Active Substance: METHYLEPHEDRINE HYDROCHLORIDE, (+/-)-
     Indication: COUGH
     Route: 048
     Dates: start: 20181222, end: 20190103
  68. DL-METHYLEPHEDRINE HYDROCHLORIDE [Concomitant]
     Active Substance: METHYLEPHEDRINE HYDROCHLORIDE, (+/-)-
     Dates: start: 20190810, end: 20190811
  69. IBUPROFEN. [Concomitant]
     Active Substance: IBUPROFEN
     Route: 048
     Dates: start: 20191024, end: 20201117
  70. SOLONDO [Concomitant]
     Active Substance: PREDNISOLONE
     Indication: RASH
     Route: 048
     Dates: start: 20190715, end: 20190731
  71. EBASTEL [Concomitant]
     Active Substance: EBASTINE
     Route: 048
     Dates: start: 20191006, end: 20200226
  72. SOXINASE [Concomitant]
     Indication: DYSPEPSIA
     Route: 048
     Dates: start: 20190808, end: 20190811
  73. CALDOLOR [Concomitant]
     Active Substance: IBUPROFEN
     Indication: PNEUMONIA
     Route: 042
     Dates: start: 20190807, end: 20190807
  74. MUCOSTA [Concomitant]
     Active Substance: REBAMIPIDE
     Route: 048
     Dates: start: 20191011
  75. GASTER [Concomitant]
     Active Substance: FAMOTIDINE
     Route: 048
     Dates: start: 20191226, end: 20200226

REACTIONS (4)
  - Stomatitis [Not Recovered/Not Resolved]
  - Rash [Recovered/Resolved]
  - Pneumonia [Not Recovered/Not Resolved]
  - Cholecystitis [Not Recovered/Not Resolved]

NARRATIVE: CASE EVENT DATE: 20181222
